FAERS Safety Report 18104360 (Version 4)
Quarter: 2020Q4

REPORT INFORMATION
  Report Type: Report from Study
  Country: CA (occurrence: CA)
  Receive Date: 20200803
  Receipt Date: 20201014
  Transmission Date: 20210113
  Serious: Yes (Hospitalization)
  Sender: FDA-Public Use
  Company Number: CA-JNJFOC-20200737652

PATIENT
  Age: 39 Year
  Sex: Male
  Weight: 97 kg

DRUGS (1)
  1. REMICADE [Suspect]
     Active Substance: INFLIXIMAB
     Indication: COLITIS ULCERATIVE
     Route: 042

REACTIONS (3)
  - Hepatic cancer [Unknown]
  - Post procedural infection [Recovering/Resolving]
  - Staphylococcal infection [Recovering/Resolving]

NARRATIVE: CASE EVENT DATE: 2020
